FAERS Safety Report 10083498 (Version 2)
Quarter: 2014Q2

REPORT INFORMATION
  Report Type: Spontaneous
  Country: US (occurrence: US)
  Receive Date: 20140417
  Receipt Date: 20140506
  Transmission Date: 20141212
  Serious: No
  Sender: FDA-Public Use
  Company Number: US-TEVA-475438USA

PATIENT
  Age: 6 Year
  Sex: Male

DRUGS (1)
  1. QVAR [Suspect]
     Route: 055
     Dates: start: 201312

REACTIONS (3)
  - Local reaction [Recovered/Resolved]
  - Erythema [Recovered/Resolved]
  - Swelling face [Recovered/Resolved]
